FAERS Safety Report 20833872 (Version 3)
Quarter: 2022Q4

REPORT INFORMATION
  Report Type: Spontaneous
  Country: US (occurrence: US)
  Receive Date: 20220516
  Receipt Date: 20221101
  Transmission Date: 20230113
  Serious: Yes (Other)
  Sender: FDA-Public Use
  Company Number: US-PFIZER INC-202101242508

PATIENT
  Age: 81 Year
  Sex: Female

DRUGS (2)
  1. BRAFTOVI [Suspect]
     Active Substance: ENCORAFENIB
     Indication: Malignant melanoma
     Dosage: 225 MG
  2. MEKTOVI [Suspect]
     Active Substance: BINIMETINIB
     Indication: Malignant melanoma
     Dosage: 30 MG

REACTIONS (5)
  - Ulcer haemorrhage [Unknown]
  - Bladder disorder [Unknown]
  - Memory impairment [Unknown]
  - COVID-19 [Recovered/Resolved]
  - Neoplasm progression [Unknown]
